FAERS Safety Report 8212407-5 (Version None)
Quarter: 2012Q1

REPORT INFORMATION
  Report Type: 
  Country: None (occurrence: None)
  Receive Date: 20120315
  Receipt Date: 20120309
  Transmission Date: 20120608
  Serious: Yes (Death, Hospitalization)
  Sender: FDA-Public Use
  Company Number: IN-BAXTER-2012BH003818

PATIENT
  Age: 16 Year
  Sex: Female

DRUGS (1)
  1. DIANEAL PD-2 W/ DEXTROSE 1.5% [Suspect]
     Indication: PERITONEAL DIALYSIS
     Route: 033
     Dates: end: 20120201

REACTIONS (3)
  - NONINFECTIOUS PERITONITIS [None]
  - CARDIAC ARREST [None]
  - ANAESTHETIC COMPLICATION [None]
